FAERS Safety Report 18897180 (Version 1)
Quarter: 2021Q1

REPORT INFORMATION
  Report Type: Spontaneous
  Country: JP (occurrence: JP)
  Receive Date: 20210215
  Receipt Date: 20210215
  Transmission Date: 20210420
  Serious: Yes (Other)
  Sender: FDA-Public Use
  Company Number: JP-TAKEDA-2021TJP003734AA

PATIENT
  Age: 6 Decade
  Sex: Male

DRUGS (6)
  1. ARIPIPRAZOLE. [Concomitant]
     Active Substance: ARIPIPRAZOLE
     Dosage: UNK
     Route: 065
  2. TRINTELLIX [Suspect]
     Active Substance: VORTIOXETINE HYDROBROMIDE
     Indication: SOCIAL AVOIDANT BEHAVIOUR
     Dosage: UNK
     Route: 048
  3. TRINTELLIX [Suspect]
     Active Substance: VORTIOXETINE HYDROBROMIDE
     Indication: LISTLESS
     Dosage: 20 MILLIGRAM
     Route: 048
     Dates: end: 20210128
  4. IMIDAPRIL HYDROCHLORIDE [Concomitant]
     Active Substance: IMIDAPRIL HYDROCHLORIDE
     Dosage: UNK
     Route: 065
  5. BELSOMRA [Concomitant]
     Active Substance: SUVOREXANT
     Dosage: UNK
     Route: 065
  6. AMLODIPINE [AMLODIPINE BESILATE] [Concomitant]
     Active Substance: AMLODIPINE BESYLATE
     Dosage: UNK
     Route: 065

REACTIONS (4)
  - Altered state of consciousness [Unknown]
  - Blood pressure increased [Unknown]
  - Seizure [Recovering/Resolving]
  - Aphasia [Unknown]

NARRATIVE: CASE EVENT DATE: 20210128
